FAERS Safety Report 4296163-1 (Version None)
Quarter: 2004Q1

REPORT INFORMATION
  Report Type: 
  Country: None (occurrence: None)
  Receive Date: 20040217
  Receipt Date: 20030905
  Transmission Date: 20041129
  Serious: Yes (Other)
  Sender: FDA-Public Use
  Company Number: US-GLAXOSMITHKLINE-A0424874A

PATIENT
  Sex: Female
  Weight: 70.9 kg

DRUGS (4)
  1. LAMICTAL [Suspect]
     Indication: MOOD SWINGS
     Dosage: 25MG THREE TIMES PER DAY
     Route: 048
     Dates: start: 20030723, end: 20030902
  2. NEURONTIN [Concomitant]
  3. RISPERDAL [Concomitant]
  4. LEXAPRO [Concomitant]

REACTIONS (1)
  - RASH [None]
